FAERS Safety Report 11091435 (Version 3)
Quarter: 2015Q2

REPORT INFORMATION
  Report Type: Spontaneous
  Country: US (occurrence: US)
  Receive Date: 20150505
  Receipt Date: 20150624
  Transmission Date: 20150821
  Serious: Yes (Hospitalization, Disabling, Other)
  Sender: FDA-Public Use
  Company Number: US-009507513-1201USA00405

PATIENT
  Sex: Female
  Weight: 79.37 kg

DRUGS (16)
  1. FOSAMAX [Suspect]
     Active Substance: ALENDRONATE SODIUM
     Indication: OSTEOPENIA
     Dosage: 70 MG, WEEKLY
     Route: 048
     Dates: start: 20030219, end: 200701
  2. FOSAMAX [Suspect]
     Active Substance: ALENDRONATE SODIUM
     Dosage: 10 MG, DAILY
     Route: 048
     Dates: start: 20090616
  3. VITAMINS (UNSPECIFIED) [Concomitant]
     Active Substance: VITAMINS
     Dosage: UNK
     Dates: start: 2000
  4. SYNTHROID [Concomitant]
     Active Substance: LEVOTHYROXINE SODIUM
     Indication: HYPOTHYROIDISM
     Dosage: 100 MICROGRAM, UNK
     Dates: start: 199905, end: 201206
  5. ACTONEL [Suspect]
     Active Substance: RISEDRONATE SODIUM
     Indication: OSTEOPENIA
     Dosage: 35 MG, Q WEDNESDAY-MONTHLY
     Route: 048
     Dates: start: 200903
  6. CALCIUM (UNSPECIFIED) [Concomitant]
     Active Substance: CALCIUM
     Dosage: UNK
     Dates: start: 2000
  7. ACIPHEX [Concomitant]
     Active Substance: RABEPRAZOLE SODIUM
     Dosage: UNK
     Dates: start: 200202, end: 200702
  8. VAGIFEM [Concomitant]
     Active Substance: ESTRADIOL
     Dosage: UNK
     Dates: start: 200110, end: 200605
  9. FOSAMAX PLUS D [Suspect]
     Active Substance: ALENDRONATE SODIUM\CHOLECALCIFEROL
     Indication: OSTEOPENIA
     Dosage: 70+2800 MG,
     Route: 048
     Dates: start: 20070226, end: 200712
  10. FOSAMAX PLUS D [Suspect]
     Active Substance: ALENDRONATE SODIUM\CHOLECALCIFEROL
     Indication: OSTEOPOROSIS
  11. ALENDRONATE SODIUM. [Suspect]
     Active Substance: ALENDRONATE SODIUM
     Indication: OSTEOPOROSIS
  12. RHINOCORT [Concomitant]
     Active Substance: BUDESONIDE
     Indication: ASTHMA
     Dosage: UNK
     Dates: start: 200208, end: 200311
  13. ACTONEL [Suspect]
     Active Substance: RISEDRONATE SODIUM
     Indication: OSTEOPOROSIS
  14. DEPO-MEDROL [Concomitant]
     Active Substance: METHYLPREDNISOLONE ACETATE
     Indication: ASTHMA
     Dosage: UNK
     Dates: start: 200003, end: 201203
  15. FOSAMAX [Suspect]
     Active Substance: ALENDRONATE SODIUM
     Indication: OSTEOPOROSIS
     Dosage: 70 MG, WEEKLY
     Route: 048
     Dates: start: 20071226
  16. ALENDRONATE SODIUM. [Suspect]
     Active Substance: ALENDRONATE SODIUM
     Indication: OSTEOPENIA
     Dosage: 70 MG, UNK
     Route: 048
     Dates: start: 20081006, end: 200912

REACTIONS (51)
  - Rhabdomyolysis [Unknown]
  - Syncope [Unknown]
  - Fall [Unknown]
  - Urinary tract infection [Unknown]
  - Polymyalgia rheumatica [Unknown]
  - Rhonchi [Unknown]
  - Postoperative wound infection [Unknown]
  - Low turnover osteopathy [Not Recovered/Not Resolved]
  - Haemorrhagic anaemia [Unknown]
  - Internal fixation of fracture [Unknown]
  - Internal fixation of fracture [Unknown]
  - Bone graft [Unknown]
  - Diabetes mellitus [Unknown]
  - Postmenopausal haemorrhage [Unknown]
  - Femur fracture [Not Recovered/Not Resolved]
  - Fracture delayed union [Not Recovered/Not Resolved]
  - Device breakage [Unknown]
  - Bone graft [Unknown]
  - Device breakage [Unknown]
  - Anxiety disorder [Unknown]
  - Depression [Unknown]
  - Osteomyelitis chronic [Not Recovered/Not Resolved]
  - Fat embolism [Unknown]
  - Bone graft [Unknown]
  - Bone graft [Unknown]
  - Bone graft [Unknown]
  - Nausea [Unknown]
  - Internal fixation of fracture [Unknown]
  - Osteoarthritis [Unknown]
  - Kyphoscoliosis [Unknown]
  - Uterine dilation and curettage [Unknown]
  - Impaired healing [Unknown]
  - Device failure [Unknown]
  - Device breakage [Unknown]
  - Osteoporosis [Not Recovered/Not Resolved]
  - Acute kidney injury [Unknown]
  - Internal fixation of fracture [Unknown]
  - Sacroiliitis [Unknown]
  - Nausea [Unknown]
  - Device failure [Unknown]
  - Knee arthroplasty [Unknown]
  - Presyncope [Unknown]
  - Anaemia postoperative [Unknown]
  - Bone disorder [Unknown]
  - Dyslipidaemia [Unknown]
  - Hypertension [Unknown]
  - Vomiting [Unknown]
  - Open reduction of fracture [Not Recovered/Not Resolved]
  - Anaemia postoperative [Unknown]
  - Hypertension [Unknown]
  - Gastrooesophageal reflux disease [Unknown]

NARRATIVE: CASE EVENT DATE: 200307
